FAERS Safety Report 6358326-0 (Version None)
Quarter: 2009Q3

REPORT INFORMATION
  Report Type: 
  Country: None (occurrence: None)
  Receive Date: 20090911
  Receipt Date: 20090903
  Transmission Date: 20100115
  Serious: Yes (Hospitalization, Other)
  Sender: FDA-Public Use
  Company Number: 230409K09CAN

PATIENT
  Age: 62 Year
  Sex: Female

DRUGS (7)
  1. REBIF [Suspect]
     Indication: MULTIPLE SCLEROSIS
     Dosage: 22 MCG, 3 IN 1 WEEKS ; 22 MCG, 3 IN 1 WEEKS
     Dates: start: 20071206, end: 20080830
  2. REBIF [Suspect]
     Indication: MULTIPLE SCLEROSIS
     Dosage: 22 MCG, 3 IN 1 WEEKS ; 22 MCG, 3 IN 1 WEEKS
     Dates: start: 20090701
  3. GABAPENTIN [Concomitant]
  4. LYRICA [Concomitant]
  5. SYNTHROID [Concomitant]
  6. EYESTILL (HYALURONATE SODIUM) (HYALURONATE SODIUM) [Concomitant]
  7. ALLERGY MEDICATION (ALLERGY MEIDICATION) [Concomitant]

REACTIONS (5)
  - FACIAL BONES FRACTURE [None]
  - FALL [None]
  - FATIGUE [None]
  - INJECTION SITE INFECTION [None]
  - SYNCOPE [None]
